FAERS Safety Report 4388903-8 (Version None)
Quarter: 2004Q2

REPORT INFORMATION
  Report Type: 
  Country: None (occurrence: None)
  Receive Date: 20040628
  Receipt Date: 20040615
  Transmission Date: 20050107
  Serious: Yes (Hospitalization)
  Sender: FDA-Public Use
  Company Number: HQ1634304APR2002

PATIENT
  Age: 49 Year
  Sex: Male

DRUGS (11)
  1. RAPAMUNE [Suspect]
     Indication: RENAL TRANSPLANT
     Dosage: SEE IMAGE
     Route: 048
     Dates: start: 20020129, end: 20020214
  2. RAPAMUNE [Suspect]
     Indication: RENAL TRANSPLANT
     Dosage: SEE IMAGE
     Route: 048
     Dates: start: 20020222, end: 20020304
  3. RAPAMUNE [Suspect]
     Indication: RENAL TRANSPLANT
     Dosage: SEE IMAGE
     Route: 048
     Dates: start: 20020305, end: 20020405
  4. CELLCEPT [Concomitant]
  5. PREDNISONE TAB [Concomitant]
  6. MINOXIDIL [Concomitant]
  7. LOPRESSOR [Concomitant]
  8. CATAPRES [Concomitant]
  9. NORVASC [Concomitant]
  10. VALGANCICLOVIR (VALGANCICLOVIR) [Concomitant]
  11. SULFAMETHOXAZOLE/TRIMETHOPRIM ^DAK^ (SULFAMETHOXAZOLE/TRIMETHOPRIM) [Concomitant]

REACTIONS (7)
  - ANGIONEUROTIC OEDEMA [None]
  - BLOOD CREATININE INCREASED [None]
  - COMPLICATIONS OF TRANSPLANTED KIDNEY [None]
  - DIALYSIS [None]
  - POST PROCEDURAL COMPLICATION [None]
  - RENAL TUBULAR NECROSIS [None]
  - THROMBOCYTOPENIA [None]
